FAERS Safety Report 5019557-5 (Version None)
Quarter: 2006Q2

REPORT INFORMATION
  Report Type: 
  Country: None (occurrence: None)
  Receive Date: 20060601
  Receipt Date: 20060525
  Transmission Date: 20061013
  Serious: Yes (Life-Threatening, Other)
  Sender: FDA-Public Use
  Company Number: 2006S1000112

PATIENT
  Age: 54 Year
  Sex: Male
  Weight: 65 kg

DRUGS (49)
  1. INOMAX [Suspect]
     Indication: PULMONARY HYPERTENSION
     Dosage: CONT
     Dates: start: 20060505, end: 20060507
  2. CEFUROXIME [Concomitant]
  3. VANCOMYCIN [Concomitant]
  4. CALCIUM CHLORIDE [Concomitant]
  5. FAMOTIDINE [Concomitant]
  6. NYSTATIN [Concomitant]
  7. DIFLUCAN [Concomitant]
  8. EPINEPHRINE [Concomitant]
  9. MILRINONE [Concomitant]
  10. SODIUM NITROPRUSSIDE [Concomitant]
  11. PROPOFOL [Concomitant]
  12. HEPARIN [Concomitant]
  13. MORPHINE [Concomitant]
  14. PROTONIX [Concomitant]
  15. ASPIRIN [Concomitant]
  16. MILRINONE [Concomitant]
  17. SODIUM NITROPRUSSIDE [Concomitant]
  18. AMPICILLIN SODIUM [Concomitant]
  19. AMIODARONE [Concomitant]
  20. PROCAINAMIDE [Concomitant]
  21. PLASMANATE [Concomitant]
  22. CEFUROXIME [Concomitant]
  23. VANCOMYCIN [Concomitant]
  24. BIVALIRUDIN [Concomitant]
  25. HYDRALAZINE HCL [Concomitant]
  26. HEPARIN [Concomitant]
  27. ACETAMINOPHEN [Concomitant]
  28. LASIX [Concomitant]
  29. OXYCODONE HCL [Concomitant]
  30. PROCAIDIMIDE [Concomitant]
  31. SODIUM BICARBONATE [Concomitant]
  32. PANTOPRAZOLE [Concomitant]
  33. BUPROPION HCL [Concomitant]
  34. MORICIZINE [Concomitant]
  35. SENOKOT [Concomitant]
  36. COLACE [Concomitant]
  37. NITRO [Concomitant]
  38. LIDOCAINE [Concomitant]
  39. DOPAMINE [Concomitant]
  40. MILRINONE [Concomitant]
  41. ASPIRIN [Concomitant]
  42. AMIODARONE [Concomitant]
  43. PROCAINAMIDE [Concomitant]
  44. PLAVIX [Concomitant]
  45. FUROSEMIDE [Concomitant]
  46. HEPARIN [Concomitant]
  47. VANCOMYCIN [Concomitant]
  48. ACETAMINOPHEN [Concomitant]
  49. POTASSIUM [Concomitant]

REACTIONS (8)
  - CARDIAC VENTRICULAR DISORDER [None]
  - CONFUSIONAL STATE [None]
  - DEPRESSED LEVEL OF CONSCIOUSNESS [None]
  - HEMIPLEGIA [None]
  - PLEURAL EFFUSION [None]
  - THALAMIC INFARCTION [None]
  - VENTRICULAR EXTRASYSTOLES [None]
  - VENTRICULAR TACHYCARDIA [None]
